FAERS Safety Report 6749463-7 (Version None)
Quarter: 2010Q2

REPORT INFORMATION
  Report Type: 
  Country: None (occurrence: None)
  Receive Date: 20100601
  Receipt Date: 20100526
  Transmission Date: 20101027
  Serious: Yes (Other)
  Sender: FDA-Public Use
  Company Number: MY-ROCHE-705965

PATIENT
  Age: 65 Year
  Sex: Female

DRUGS (2)
  1. ROCEPHIN [Suspect]
     Indication: MENINGITIS
     Route: 042
  2. ACYCLOVIR [Concomitant]

REACTIONS (2)
  - HYPOTENSION [None]
  - RASH [None]
